FAERS Safety Report 7216931-3 (Version None)
Quarter: 2011Q1

REPORT INFORMATION
  Report Type: 
  Country: None (occurrence: None)
  Receive Date: 20110110
  Receipt Date: 20100615
  Transmission Date: 20110831
  Serious: Yes (Hospitalization, Other)
  Sender: FDA-Public Use
  Company Number: US-BAYER-200926415NA

PATIENT
  Sex: Female
  Weight: 59.091 kg

DRUGS (8)
  1. PROPRANOLOL [Concomitant]
     Route: 065
     Dates: start: 20000101
  2. PREVACID [Concomitant]
     Route: 065
     Dates: start: 20060101, end: 20080101
  3. YAZ [Suspect]
     Indication: PREMENSTRUAL SYNDROME
  4. YAZ [Suspect]
  5. ZOLOFT [Concomitant]
     Route: 065
     Dates: start: 20000101, end: 20080101
  6. YAZ [Suspect]
     Indication: DYSMENORRHOEA
     Route: 048
     Dates: start: 20070808, end: 20071129
  7. PROVENTIL [Concomitant]
     Route: 055
     Dates: start: 20070101, end: 20080101
  8. XANAX [Concomitant]
     Dosage: ??-SEP-2007
     Route: 065

REACTIONS (8)
  - DYSPNOEA [None]
  - PAIN [None]
  - PULMONARY FUNCTION TEST DECREASED [None]
  - PLEURISY [None]
  - PULMONARY THROMBOSIS [None]
  - PULMONARY EMBOLISM [None]
  - PLEURAL EFFUSION [None]
  - ASTHMA [None]
